FAERS Safety Report 25472971 (Version 3)
Quarter: 2025Q3

REPORT INFORMATION
  Report Type: Spontaneous
  Country: US (occurrence: US)
  Receive Date: 20250624
  Receipt Date: 20250802
  Transmission Date: 20251021
  Serious: Yes (Other)
  Sender: ALEXION PHARMACEUTICALS
  Company Number: US-AstraZeneca-CH-00896551A

PATIENT
  Age: 85 Year
  Sex: Female

DRUGS (1)
  1. SYMBICORT [Suspect]
     Active Substance: BUDESONIDE\FORMOTEROL FUMARATE DIHYDRATE
     Route: 065

REACTIONS (8)
  - Seizure [Unknown]
  - Gait disturbance [Unknown]
  - Weight decreased [Unknown]
  - Product use issue [Unknown]
  - Partial seizures [Unknown]
  - Overdose [Unknown]
  - Malaise [Unknown]
  - Incorrect dose administered [Unknown]

NARRATIVE: CASE EVENT DATE: 20250623
